FAERS Safety Report 24076031 (Version 3)
Quarter: 2024Q3

REPORT INFORMATION
  Report Type: Spontaneous
  Country: JP (occurrence: JP)
  Receive Date: 20240710
  Receipt Date: 20240920
  Transmission Date: 20241016
  Serious: Yes (Death, Hospitalization, Other)
  Sender: BRISTOL MYERS SQUIBB
  Company Number: JP-BRISTOL-MYERS SQUIBB COMPANY-2024-106887

PATIENT
  Age: 79 Year
  Sex: Male
  Weight: 51 kg

DRUGS (2)
  1. REBLOZYL [Suspect]
     Active Substance: LUSPATERCEPT-AAMT
     Indication: Myelodysplastic syndrome
     Dosage: NUMBER OF DAYS ADMINISTERED UNTIL 26-JUN-2024: 22 DAYS
     Route: 058
     Dates: start: 20240605
  2. REBLOZYL [Suspect]
     Active Substance: LUSPATERCEPT-AAMT
     Route: 058
     Dates: start: 20240605, end: 20240719

REACTIONS (2)
  - Haemoglobin decreased [Recovering/Resolving]
  - Myelodysplastic syndrome [Fatal]

NARRATIVE: CASE EVENT DATE: 20240626
